FAERS Safety Report 19389403 (Version 1)
Quarter: 2021Q2

REPORT INFORMATION
  Report Type: Spontaneous
  Country: NL (occurrence: NL)
  Receive Date: 20210608
  Receipt Date: 20210608
  Transmission Date: 20210717
  Serious: Yes (Other)
  Sender: FDA-Public Use
  Company Number: NL-ACCORD-227152

PATIENT
  Age: 65 Year
  Sex: Male

DRUGS (9)
  1. PANTOPRAZOLE [Concomitant]
     Active Substance: PANTOPRAZOLE
  2. URSODEOXYCHOLATE SODIUM/URSODEOXYCHOLIC ACID [Concomitant]
     Active Substance: URSODIOL
  3. TACROLIMUS. [Concomitant]
     Active Substance: TACROLIMUS
     Indication: IMMUNOSUPPRESSION
     Dates: start: 2018
  4. TACROLIMUS. [Concomitant]
     Active Substance: TACROLIMUS
     Indication: IMMUNOSUPPRESSION
     Dosage: 4 MG, 12 HOUR
     Dates: start: 2018, end: 2019
  5. CLOPIDOGREL [Concomitant]
     Active Substance: CLOPIDOGREL BISULFATE
  6. OXYCODONE/OXYCODONE HYDROCHLORIDE/OXYCODONE PECTINATE/OXYCODONE TEREPHTHALATE [Concomitant]
     Active Substance: OXYCODONE
  7. TEMAZEPAM. [Concomitant]
     Active Substance: TEMAZEPAM
  8. MYCOPHENOLIC ACID. [Suspect]
     Active Substance: MYCOPHENOLIC ACID
     Indication: IMMUNOSUPPRESSION
     Dates: start: 2018
  9. PRAVASTATIN. [Concomitant]
     Active Substance: PRAVASTATIN

REACTIONS (1)
  - Hepatotoxicity [Unknown]
